FAERS Safety Report 8100170 (Version 4)
Quarter: 2013Q4

REPORT INFORMATION
  Report Type: Spontaneous
  Country: US (occurrence: US)
  Receive Date: 20110822
  Receipt Date: 20131202
  Transmission Date: 20140711
  Serious: Yes (Hospitalization)
  Sender: FDA-Public Use
  Company Number: US-GLAXOSMITHKLINE-A0915687A

PATIENT
  Age: 49 Year
  Sex: Male
  Weight: 93.6 kg

DRUGS (1)
  1. AVANDIA [Suspect]
     Indication: DIABETES MELLITUS
     Dosage: 4MG PER DAY
     Route: 048
     Dates: start: 2003, end: 200708

REACTIONS (7)
  - Ventricular fibrillation [Not Recovered/Not Resolved]
  - Ischaemic cardiomyopathy [Unknown]
  - Cardiac failure congestive [Unknown]
  - Myocardial infarction [Unknown]
  - Coronary artery disease [Unknown]
  - Arrhythmia [Unknown]
  - Amnesia [Unknown]
